FAERS Safety Report 8849302 (Version 2)
Quarter: 2012Q4

REPORT INFORMATION
  Report Type: 
  Country: GB (occurrence: GB)
  Receive Date: 20121019
  Receipt Date: 20121114
  Transmission Date: 20130627
  Serious: Yes (Other)
  Sender: FDA-Public Use
  Company Number: PHFR2012GB002284

PATIENT
  Age: 48 Year
  Sex: Female

DRUGS (1)
  1. CLOZARIL [Suspect]
     Indication: SCHIZOPHRENIA
     Route: 048
     Dates: start: 20120125, end: 20121109

REACTIONS (10)
  - Enuresis [Unknown]
  - Type 1 diabetes mellitus [Recovering/Resolving]
  - Alanine aminotransferase increased [Unknown]
  - Blood alkaline phosphatase increased [Unknown]
  - Urinary incontinence [Recovered/Resolved]
  - Constipation [Unknown]
  - Feeling cold [Unknown]
  - Hyperhidrosis [Unknown]
  - White blood cell count increased [Unknown]
  - Neutrophil count increased [Unknown]
